FAERS Safety Report 13029369 (Version 1)
Quarter: 2016Q4

REPORT INFORMATION
  Report Type: Spontaneous
  Country: US (occurrence: US)
  Receive Date: 20161214
  Receipt Date: 20161214
  Transmission Date: 20170207
  Serious: Yes (Other)
  Sender: FDA-Public Use
  Company Number: None

PATIENT
  Sex: Male

DRUGS (1)
  1. CAPECITABINE 500MG ACCORD [Suspect]
     Active Substance: CAPECITABINE
     Dosage: 2000MG BID FOR 14 DAYS ON, PO
     Route: 048
     Dates: start: 201608

REACTIONS (4)
  - Judgement impaired [None]
  - Visual impairment [None]
  - Refusal of treatment by patient [None]
  - Impaired driving ability [None]
